FAERS Safety Report 15688075 (Version 1)
Quarter: 2018Q4

REPORT INFORMATION
  Report Type: Spontaneous
  Country: FR (occurrence: FR)
  Receive Date: 20181205
  Receipt Date: 20181205
  Transmission Date: 20190205
  Serious: Yes (Hospitalization)
  Sender: FDA-Public Use
  Company Number: FR-TEVA-2018-FR-982091

PATIENT
  Age: 27 Year
  Sex: Male

DRUGS (4)
  1. PARACETAMOL [Suspect]
     Active Substance: ACETAMINOPHEN
     Indication: SUICIDE ATTEMPT
     Route: 048
     Dates: start: 20181016, end: 20181016
  2. AMOXICILLINE [Suspect]
     Active Substance: AMOXICILLIN
     Indication: SUICIDE ATTEMPT
     Route: 048
     Dates: start: 20181016, end: 20181016
  3. SPASFON (FRANCE) [Suspect]
     Active Substance: PHLOROGLUCINOL\1,3,5-TRIMETHOXYBENZENE
     Indication: SUICIDE ATTEMPT
     Route: 048
     Dates: start: 20181016, end: 20181016
  4. OFLOCET [Suspect]
     Active Substance: OFLOXACIN
     Indication: SUICIDE ATTEMPT
     Route: 048
     Dates: start: 20181016, end: 20181016

REACTIONS (5)
  - Somnolence [Recovered/Resolved]
  - Vomiting [Recovered/Resolved]
  - Prothrombin time ratio decreased [Not Recovered/Not Resolved]
  - Hypokalaemia [Not Recovered/Not Resolved]
  - Poisoning deliberate [Recovered/Resolved]

NARRATIVE: CASE EVENT DATE: 20181016
